FAERS Safety Report 9014123 (Version 1)
Quarter: 2013Q1

REPORT INFORMATION
  Report Type: Spontaneous
  Country: EG (occurrence: EG)
  Receive Date: 20130115
  Receipt Date: 20130115
  Transmission Date: 20140127
  Serious: Yes (Death, Other)
  Sender: FDA-Public Use
  Company Number: EG-JNJFOC-20130106755

PATIENT
  Sex: 0

DRUGS (4)
  1. DOXORUBICIN [Suspect]
     Indication: LYMPHOMA
     Dosage: SIX CYCLES; CYCLICAL REGIME AT 14 DAY INTERVAL
     Route: 042
  2. CYCLOPHOSPHAMIDE [Suspect]
     Indication: LYMPHOMA
     Dosage: CYCLICAL REGIME AT 14 DAY INTERVAL
     Route: 042
  3. VINCRISTINE [Suspect]
     Indication: LYMPHOMA
     Dosage: (MAXIMUM DOSE OF 2 MG) ON DAY 1, SIX CYCLES
     Route: 042
  4. PREDNISONE [Suspect]
     Indication: LYMPHOMA
     Dosage: GIVEN ON DAYS 1 TO 5, SIX CYCLES
     Route: 048

REACTIONS (5)
  - Death [Fatal]
  - Sepsis [Unknown]
  - Neutropenia [Unknown]
  - Off label use [Unknown]
  - Alopecia [Unknown]
